FAERS Safety Report 11291377 (Version 3)
Quarter: 2015Q3

REPORT INFORMATION
  Report Type: Report from Study
  Country: US (occurrence: US)
  Receive Date: 20150722
  Receipt Date: 20150827
  Transmission Date: 20151125
  Serious: Yes (Hospitalization)
  Sender: FDA-Public Use
  Company Number: US-ACTELION-A-NJ2015-121226

PATIENT
  Age: 71 Year
  Sex: Female

DRUGS (8)
  1. MACITENTAN [Suspect]
     Active Substance: MACITENTAN
     Indication: PULMONARY ARTERIAL HYPERTENSION
     Dosage: 10 MG, QD
     Route: 048
     Dates: start: 20140828
  2. TUMS [Concomitant]
     Active Substance: CALCIUM CARBONATE
     Dosage: 500 G, QD
  3. DEXILANT [Concomitant]
     Active Substance: DEXLANSOPRAZOLE
     Dosage: 60 UNK, BID
  4. XIFAXAN [Concomitant]
     Active Substance: RIFAXIMIN
     Dosage: 550 G, BID
  5. FUROSEMIDE. [Concomitant]
     Active Substance: FUROSEMIDE
     Dosage: UNK
  6. METACLOPRAMIDE [Concomitant]
     Active Substance: METOCLOPRAMIDE
     Dosage: 10 UNK, QD
  7. POTASSIUM [Concomitant]
     Active Substance: POTASSIUM
     Dosage: 10 UNK, UNK
  8. REMODULIN [Concomitant]
     Active Substance: TREPROSTINIL

REACTIONS (3)
  - Diarrhoea [Recovered/Resolved]
  - Ascites [Recovered/Resolved]
  - Dyspnoea [Recovered/Resolved]

NARRATIVE: CASE EVENT DATE: 20150630
